FAERS Safety Report 19078580 (Version 1)
Quarter: 2021Q1

REPORT INFORMATION
  Report Type: Spontaneous
  Country: JP (occurrence: JP)
  Receive Date: 20210331
  Receipt Date: 20210331
  Transmission Date: 20210420
  Serious: Yes (Other)
  Sender: FDA-Public Use
  Company Number: JP-CASPER PHARMA LLC-2021CAS000127

PATIENT
  Age: 72 Year
  Sex: Male

DRUGS (1)
  1. AZATHIOPRINE. [Suspect]
     Active Substance: AZATHIOPRINE
     Indication: PEMPHIGOID
     Dosage: 100 MILLIGRAM, QD
     Route: 065

REACTIONS (3)
  - Diarrhoea [Recovered/Resolved]
  - Product use in unapproved indication [Unknown]
  - Pemphigus [Recovered/Resolved]
